FAERS Safety Report 15244539 (Version 1)
Quarter: 2018Q3

REPORT INFORMATION
  Report Type: Report from Study
  Country: US (occurrence: US)
  Receive Date: 20180806
  Receipt Date: 20180806
  Transmission Date: 20181010
  Serious: Yes (Hospitalization)
  Sender: FDA-Public Use
  Company Number: PHEH2018US031856

PATIENT
  Age: 9 Month
  Sex: Female

DRUGS (1)
  1. ZORTRESS [Suspect]
     Active Substance: EVEROLIMUS
     Indication: TRANSPLANT
     Dosage: 0.25 MG, BID
     Route: 048
     Dates: start: 20180724

REACTIONS (4)
  - Drug administered to patient of inappropriate age [Unknown]
  - Dehydration [Unknown]
  - Feeding disorder [Unknown]
  - Stomatitis [Unknown]

NARRATIVE: CASE EVENT DATE: 20180729
